FAERS Safety Report 8879512 (Version 7)
Quarter: 2014Q2

REPORT INFORMATION
  Report Type: Report from Study
  Country: US (occurrence: US)
  Receive Date: 20121031
  Receipt Date: 20140421
  Transmission Date: 20141212
  Serious: Yes (Death, Life-Threatening, Hospitalization)
  Sender: FDA-Public Use
  Company Number: US-CELGENEUS-163-21880-12103446

PATIENT
  Age: 80 Year
  Sex: Male
  Weight: 84.2 kg

DRUGS (31)
  1. REVLIMID [Suspect]
     Indication: PLASMA CELL MYELOMA
     Dosage: 25 MILLIGRAM
     Route: 048
     Dates: start: 20120413, end: 20120612
  2. DEXAMETHASONE [Suspect]
     Indication: PLASMA CELL MYELOMA
     Dosage: 40 MILLIGRAM
     Route: 048
     Dates: start: 20120413, end: 20120608
  3. ELOTUZUMAB [Suspect]
     Indication: PLASMA CELL MYELOMA
     Route: 065
  4. LASIX [Concomitant]
     Indication: PRODUCT USED FOR UNKNOWN INDICATION
     Route: 065
     Dates: start: 20080817
  5. ONDANSETRON [Concomitant]
     Indication: PRODUCT USED FOR UNKNOWN INDICATION
     Route: 065
     Dates: start: 20120326
  6. VITAMIN B12 [Concomitant]
     Indication: PRODUCT USED FOR UNKNOWN INDICATION
     Route: 065
     Dates: start: 20080817
  7. STOOL SOFTENER [Concomitant]
     Indication: PRODUCT USED FOR UNKNOWN INDICATION
     Route: 065
     Dates: start: 20080817
  8. PROCHLORPERAZINE MALEATE [Concomitant]
     Indication: PRODUCT USED FOR UNKNOWN INDICATION
     Route: 065
     Dates: start: 20120224
  9. PRILOSEC [Concomitant]
     Indication: PRODUCT USED FOR UNKNOWN INDICATION
     Route: 065
     Dates: start: 20080817
  10. MULTIVITAMINS [Concomitant]
     Indication: PRODUCT USED FOR UNKNOWN INDICATION
     Route: 065
     Dates: start: 20080817
  11. LIPITOR [Concomitant]
     Indication: PRODUCT USED FOR UNKNOWN INDICATION
     Route: 065
     Dates: start: 20080817
  12. LEVOXYL [Concomitant]
     Indication: PRODUCT USED FOR UNKNOWN INDICATION
     Route: 065
     Dates: start: 20080817
  13. LANOXIN [Concomitant]
     Indication: PRODUCT USED FOR UNKNOWN INDICATION
     Route: 065
     Dates: start: 20080817
  14. HYZAAR [Concomitant]
     Indication: PRODUCT USED FOR UNKNOWN INDICATION
     Route: 065
     Dates: start: 20080817
  15. VITAMIN D [Concomitant]
     Indication: PRODUCT USED FOR UNKNOWN INDICATION
     Route: 065
     Dates: start: 20080817
  16. CALCIUM CITRATE [Concomitant]
     Indication: PRODUCT USED FOR UNKNOWN INDICATION
     Route: 065
     Dates: start: 20080817
  17. COUMADIN [Concomitant]
     Indication: PRODUCT USED FOR UNKNOWN INDICATION
     Route: 065
     Dates: start: 20080817
  18. ASPIRIN [Concomitant]
     Indication: PRODUCT USED FOR UNKNOWN INDICATION
     Route: 065
     Dates: start: 20080817
  19. NORMAL SALINE [Concomitant]
     Indication: ADVERSE EVENT
     Route: 065
     Dates: start: 20120902, end: 20120902
  20. PHYTONADIONE [Concomitant]
     Indication: ADVERSE EVENT
     Route: 065
     Dates: start: 20120902, end: 20120902
  21. FAMOTIDINE [Concomitant]
     Indication: ADVERSE EVENT
     Route: 065
     Dates: start: 20120902, end: 20120902
  22. DEXTROSE [Concomitant]
     Indication: ADVERSE EVENT
     Route: 065
     Dates: start: 20120902, end: 20120902
  23. PANTOPRAZOLE [Concomitant]
     Indication: ADVERSE EVENT
     Route: 065
     Dates: start: 20120902, end: 20120902
  24. FUROSEMIDE [Concomitant]
     Indication: ADVERSE EVENT
     Route: 065
     Dates: start: 20120902, end: 20120903
  25. PIP/TAZO [Concomitant]
     Indication: ADVERSE EVENT
     Route: 065
     Dates: start: 20120902, end: 20120902
  26. KETAMINE [Concomitant]
     Indication: ADVERSE EVENT
     Route: 065
     Dates: start: 20120903, end: 20120903
  27. MIDAZOLAM [Concomitant]
     Indication: ADVERSE EVENT
     Route: 065
     Dates: start: 20120903, end: 20120903
  28. SUCCINYLCHOLINE [Concomitant]
     Indication: ADVERSE EVENT
     Route: 065
     Dates: start: 20120903, end: 20120903
  29. HYDROCORTISONE [Concomitant]
     Indication: ADVERSE EVENT
     Route: 065
     Dates: start: 20120903, end: 20120903
  30. MORPHINE [Concomitant]
     Indication: ADVERSE EVENT
     Route: 065
     Dates: start: 20120903, end: 20120903
  31. NOREPINEPHRINE [Concomitant]
     Indication: ADVERSE EVENT
     Route: 065
     Dates: start: 20120903, end: 20120903

REACTIONS (3)
  - Cardiac disorder [Fatal]
  - Sepsis [Fatal]
  - Acute myocardial infarction [Recovered/Resolved with Sequelae]
